FAERS Safety Report 10419406 (Version 2)
Quarter: 2014Q3

REPORT INFORMATION
  Report Type: Spontaneous
  Country: CA (occurrence: CA)
  Receive Date: 20140829
  Receipt Date: 20140904
  Transmission Date: 20150326
  Serious: Yes (Hospitalization, Other)
  Sender: FDA-Public Use
  Company Number: CA-AMGEN-CANSP2014065859

PATIENT
  Age: 78 Year
  Sex: Female

DRUGS (3)
  1. PROLIA [Suspect]
     Active Substance: DENOSUMAB
     Indication: OSTEOPOROSIS POSTMENOPAUSAL
     Dosage: 60 MG, Q6MO
     Route: 058
     Dates: start: 20120512
  2. FENTANYL. [Concomitant]
     Active Substance: FENTANYL
  3. HYDROMORPHONE [Concomitant]
     Active Substance: HYDROMORPHONE

REACTIONS (13)
  - Mouth ulceration [Unknown]
  - Confusional state [Unknown]
  - Stomatitis [Unknown]
  - Fall [Unknown]
  - Hyperhidrosis [Unknown]
  - Head titubation [Unknown]
  - Head injury [Unknown]
  - Hip fracture [Unknown]
  - Adverse drug reaction [Unknown]
  - Oral pain [Recovered/Resolved]
  - Agitation [Unknown]
  - Oral mucosal erythema [Unknown]
  - Pyrexia [Unknown]

NARRATIVE: CASE EVENT DATE: 201309
